FAERS Safety Report 5115182-6 (Version None)
Quarter: 2006Q3

REPORT INFORMATION
  Report Type: 
  Country: None (occurrence: None)
  Receive Date: 20060925
  Receipt Date: 20060925
  Transmission Date: 20061208
  Serious: Yes (Other)
  Sender: FDA-Public Use
  Company Number: None

PATIENT
  Sex: Female
  Weight: 52.1637 kg

DRUGS (2)
  1. DIFFERIN [Suspect]
     Indication: ACNE
     Dosage: THIN LAYER UPON SKIN   ALTERNATING NIGHTS   TOP
     Route: 061
     Dates: start: 20051201, end: 20060201
  2. DIFFERIN [Suspect]
     Indication: ACNE
     Dosage: THIN LAYER UPON SKIN   ALTERNATING NIGHTS   TOP
     Route: 061
     Dates: start: 20060908, end: 20060921

REACTIONS (10)
  - ALOPECIA [None]
  - DEPRESSED MOOD [None]
  - ERYTHEMA [None]
  - PAIN [None]
  - PAIN OF SKIN [None]
  - PRURITUS [None]
  - SCAB [None]
  - SKIN DISORDER [None]
  - SKIN ULCER [None]
  - THERAPY NON-RESPONDER [None]
